FAERS Safety Report 18131222 (Version 1)
Quarter: 2020Q3

REPORT INFORMATION
  Report Type: Spontaneous
  Country: US (occurrence: US)
  Receive Date: 20200810
  Receipt Date: 20200810
  Transmission Date: 20201103
  Serious: No
  Sender: FDA-Public Use
  Company Number: US-REDHILL BIOPHARMA-2020RDH00004

PATIENT
  Age: 77 Year
  Sex: Male
  Weight: 80.27 kg

DRUGS (8)
  1. TALICIA [Suspect]
     Active Substance: AMOXICILLIN\OMEPRAZOLE MAGNESIUM\RIFABUTIN
     Indication: HELICOBACTER INFECTION
     Dosage: 4 CAPSULES, 3X/DAY (EVERY 8 HOURS)
     Route: 048
     Dates: start: 20200626
  2. ATORVASTATIN [Concomitant]
     Active Substance: ATORVASTATIN
  3. ALFUZOSIN [Concomitant]
     Active Substance: ALFUZOSIN
  4. CLONAZEPAM. [Concomitant]
     Active Substance: CLONAZEPAM
  5. ELIQUIS [Concomitant]
     Active Substance: APIXABAN
  6. FINASTERIDE. [Concomitant]
     Active Substance: FINASTERIDE
  7. MOTEGRITY [Concomitant]
     Active Substance: PRUCALOPRIDE SUCCINATE
  8. LINZESS [Concomitant]
     Active Substance: LINACLOTIDE

REACTIONS (3)
  - Product dose omission issue [Unknown]
  - Unevaluable event [Unknown]
  - Diarrhoea [Recovered/Resolved]

NARRATIVE: CASE EVENT DATE: 2020
